FAERS Safety Report 7465416-8 (Version None)
Quarter: 2011Q2

REPORT INFORMATION
  Report Type: 
  Country: None (occurrence: None)
  Receive Date: 20110509
  Receipt Date: 20101108
  Transmission Date: 20111010
  Serious: No
  Sender: FDA-Public Use
  Company Number: US-BAUSCH-2010BL006420

PATIENT
  Sex: Male

DRUGS (3)
  1. REFRESH [Concomitant]
     Indication: DRY EYE
     Route: 047
  2. LOTEMAX [Suspect]
     Indication: EYE ALLERGY
     Route: 047
     Dates: start: 20101025
  3. OPTIVE [Concomitant]
     Indication: DRY EYE
     Route: 047

REACTIONS (1)
  - DRUG EFFECT DECREASED [None]
